FAERS Safety Report 14599283 (Version 1)
Quarter: 2018Q1

REPORT INFORMATION
  Report Type: Spontaneous
  Country: US (occurrence: US)
  Receive Date: 20180305
  Receipt Date: 20180305
  Transmission Date: 20180509
  Serious: No
  Sender: FDA-Public Use
  Company Number: US-BAYER-2018-017200

PATIENT
  Age: 56 Year
  Sex: Female
  Weight: 52.97 kg

DRUGS (6)
  1. BAYER ASPIRIN [Suspect]
     Active Substance: ASPIRIN
     Indication: STENT PLACEMENT
     Dosage: 1 DF, QD
     Route: 048
  2. CLARITIN [Suspect]
     Active Substance: LORATADINE
     Indication: ALLERGIC RESPIRATORY SYMPTOM
     Dosage: UNK
     Route: 048
  3. AFRIN ORIGINAL [Suspect]
     Active Substance: OXYMETAZOLINE HYDROCHLORIDE
     Indication: INFLUENZA
     Dosage: 2 SPRAYS FOR 4 DAYS, BID
     Route: 055
  4. CLARITIN [Suspect]
     Active Substance: LORATADINE
     Indication: NASOPHARYNGITIS
  5. ATORVASTATIN [Concomitant]
     Active Substance: ATORVASTATIN
  6. FLONASE [Concomitant]
     Active Substance: FLUTICASONE PROPIONATE

REACTIONS (4)
  - Product prescribing issue [Recovered/Resolved]
  - Fibromyalgia [Unknown]
  - Product closure removal difficult [None]
  - Product use in unapproved indication [Not Recovered/Not Resolved]
